FAERS Safety Report 9029034 (Version 2)
Quarter: 2013Q1

REPORT INFORMATION
  Report Type: Spontaneous
  Country: AR (occurrence: AR)
  Receive Date: 20130122
  Receipt Date: 20130201
  Transmission Date: 20140127
  Serious: Yes (Other)
  Sender: FDA-Public Use
  Company Number: PHHY2013AR004665

PATIENT
  Sex: Female

DRUGS (2)
  1. GILENYA [Suspect]
     Indication: MULTIPLE SCLEROSIS
     Dosage: 0.5 MG, QD
     Route: 048
     Dates: start: 20120507, end: 20121207
  2. TEGRETOL [Concomitant]
     Indication: MUSCLE SPASMS

REACTIONS (3)
  - Hepatotoxicity [Unknown]
  - Transaminases increased [Recovered/Resolved]
  - Gamma-glutamyltransferase increased [Recovering/Resolving]
